FAERS Safety Report 5824107-7 (Version None)
Quarter: 2008Q3

REPORT INFORMATION
  Report Type: 
  Country: None (occurrence: None)
  Receive Date: 20080728
  Receipt Date: 20080721
  Transmission Date: 20090109
  Serious: Yes (Other)
  Sender: FDA-Public Use
  Company Number: PHNU2008DE00933

PATIENT
  Sex: Male
  Weight: 51.5 kg

DRUGS (11)
  1. SEBIVO [Suspect]
     Indication: HEPATITIS B
     Dosage: 600 MG, Q72H
     Route: 048
     Dates: start: 20071212, end: 20080131
  2. SEBIVO [Suspect]
     Dosage: 600MG/DAY
  3. SEBIVO [Suspect]
     Dosage: 600 MG, Q96H
  4. AMLODIPINE BASICS [Concomitant]
     Indication: HYPERTENSION
     Dosage: 1 DF, BID
     Route: 065
     Dates: start: 20071107
  5. RAMIPRIL [Concomitant]
     Indication: HYPERTENSION
     Dosage: 1 DF, BID
     Route: 065
     Dates: start: 20071107
  6. MOXONIDINE [Concomitant]
     Indication: RENAL HYPERTENSION
     Dosage: 1 DF, BID
     Route: 065
     Dates: start: 20071107
  7. NOVAMINSULFON [Concomitant]
     Indication: PAIN
     Dosage: 20 DRP, PRN
     Route: 065
     Dates: start: 20071115
  8. ARANESP [Concomitant]
     Indication: NEPHROGENIC ANAEMIA
     Dosage: 10 ?G BIW
     Route: 065
     Dates: start: 20070929
  9. TRAMADOL HCL [Concomitant]
     Dosage: UNK, PRN
  10. BISOPROLOL FUMARATE [Concomitant]
     Indication: RENAL HYPERTENSION
     Route: 048
     Dates: start: 20071127
  11. MOVICOL [Concomitant]
     Indication: CONSTIPATION
     Dosage: UNK, PRN
     Route: 048
     Dates: start: 20080212

REACTIONS (5)
  - BLOOD CREATINE PHOSPHOKINASE INCREASED [None]
  - BLOOD UREA INCREASED [None]
  - HYPERKALAEMIA [None]
  - MYALGIA [None]
  - RHABDOMYOLYSIS [None]
